FAERS Safety Report 8454169-2 (Version None)
Quarter: 2012Q2

REPORT INFORMATION
  Report Type: 
  Country: None (occurrence: None)
  Receive Date: 20120620
  Receipt Date: 20120606
  Transmission Date: 20120825
  Serious: Yes (Hospitalization, Other)
  Sender: FDA-Public Use
  Company Number: JP-ROCHE-1050884

PATIENT
  Age: 58 Year
  Sex: Male
  Weight: 72 kg

DRUGS (14)
  1. FLUOROURACIL [Suspect]
     Dosage: DOSAGE IS UNCERTAIN.
     Route: 041
     Dates: start: 20100101, end: 20100101
  2. OXALIPLATIN [Concomitant]
     Dosage: DOSAGE IS UNCERTAIN.
     Route: 041
     Dates: start: 20100101, end: 20100101
  3. IRINOTECAN HCL [Suspect]
     Indication: COLON CANCER METASTATIC
     Dosage: DOSAGE IS UNCERTAIN.
     Route: 041
     Dates: start: 20101201
  4. VECTIBIX [Suspect]
     Indication: COLON CANCER METASTATIC
     Dosage: DOSAGE IS UNCERTAIN.
     Route: 041
     Dates: start: 20101201
  5. FLUOROURACIL [Suspect]
     Indication: COLON CANCER METASTATIC
     Dosage: DOSAGE IS UNCERTAIN.
     Route: 040
     Dates: start: 20100101, end: 20100101
  6. LEVOLEUCOVORIN CALCIUM [Suspect]
     Dosage: DOSAGE IS UNCERTAIN.
     Route: 041
     Dates: start: 20101201
  7. FLUOROURACIL [Suspect]
     Dosage: DOSAGE IS UNCERTAIN.
     Route: 041
     Dates: start: 20100101, end: 20100101
  8. FLUOROURACIL [Suspect]
     Dosage: DOSAGE IS UNCERTAIN.
     Route: 041
     Dates: start: 20101201
  9. OXALIPLATIN [Concomitant]
     Indication: COLON CANCER METASTATIC
     Dosage: DOSAGE IS UNCERTAIN.
     Route: 041
     Dates: start: 20100101, end: 20100101
  10. FLUOROURACIL [Suspect]
     Dosage: DOSAGE IS UNCERTAIN.
     Route: 040
     Dates: start: 20100101, end: 20100101
  11. AVASTIN [Suspect]
     Indication: COLON CANCER METASTATIC
     Dosage: DOSAGE IS UNCERTAIN.
     Route: 041
     Dates: start: 20100101, end: 20100101
  12. FLUOROURACIL [Suspect]
     Dosage: DOSAGE IS UNCERTAIN.
     Route: 040
     Dates: start: 20101201
  13. LEVOLEUCOVORIN CALCIUM [Suspect]
     Indication: COLON CANCER METASTATIC
     Dosage: DOSAGE IS UNCERTAIN.
     Route: 041
     Dates: start: 20100101, end: 20100101
  14. LEVOLEUCOVORIN CALCIUM [Suspect]
     Dosage: DOSAGE IS UNCERTAIN.
     Route: 041
     Dates: start: 20100101, end: 20100101

REACTIONS (4)
  - HYPERTENSION [None]
  - PARONYCHIA [None]
  - LUNG DISORDER [None]
  - PALMAR-PLANTAR ERYTHRODYSAESTHESIA SYNDROME [None]
